FAERS Safety Report 16515670 (Version 1)
Quarter: 2019Q3

REPORT INFORMATION
  Report Type: Spontaneous
  Country: US (occurrence: US)
  Receive Date: 20190702
  Receipt Date: 20190702
  Transmission Date: 20191004
  Serious: Yes (Death)
  Sender: FDA-Public Use
  Company Number: None

PATIENT
  Age: 97 Year
  Sex: Male

DRUGS (2)
  1. OXYBUTYNIN CL ER [Suspect]
     Active Substance: OXYBUTYNIN CHLORIDE
     Route: 048
  2. TIMOLOL MALEATE EYE DROPS [Suspect]
     Active Substance: TIMOLOL MALEATE

REACTIONS (1)
  - Death [None]
